FAERS Safety Report 6475188-1 (Version None)
Quarter: 2009Q4

REPORT INFORMATION
  Report Type: 
  Country: None (occurrence: None)
  Receive Date: 20091204
  Receipt Date: 20090601
  Transmission Date: 20100525
  Serious: Yes (Hospitalization)
  Sender: FDA-Public Use
  Company Number: JP-ELI_LILLY_AND_COMPANY-JP200903004313

PATIENT
  Sex: Male
  Weight: 68.9 kg

DRUGS (5)
  1. GEMCITABINE HCL [Suspect]
     Indication: PANCREATIC CARCINOMA NON-RESECTABLE
     Dosage: 1800 MG, UNK
     Route: 042
     Dates: start: 20090227, end: 20090316
  2. BARACLUDE [Concomitant]
     Indication: HEPATITIS B
     Dosage: 0.5 MG, DAILY (1/D)
     Route: 048
  3. LOXOPROFEN [Concomitant]
     Dosage: 60 MG, UNK
     Route: 048
     Dates: start: 20090315
  4. CALONAL [Concomitant]
     Indication: HEADACHE
     Route: 048
     Dates: start: 20090323
  5. TAKEPRON [Concomitant]
     Indication: PROPHYLAXIS
     Dosage: 15 MG, DAILY (1/D)
     Route: 048
     Dates: start: 20090323

REACTIONS (7)
  - CEREBELLAR HAEMORRHAGE [None]
  - DECREASED APPETITE [None]
  - DIZZINESS [None]
  - EYELID PTOSIS [None]
  - HEADACHE [None]
  - NAUSEA [None]
  - PERFORMANCE STATUS DECREASED [None]
